FAERS Safety Report 24918599 (Version 6)
Quarter: 2025Q2

REPORT INFORMATION
  Report Type: Report from Study
  Country: US (occurrence: US)
  Receive Date: 20250203
  Receipt Date: 20250521
  Transmission Date: 20250716
  Serious: No
  Sender: SANOFI AVENTIS
  Company Number: US-SANOFI-02389249

PATIENT
  Age: 85 Year
  Sex: Male

DRUGS (2)
  1. DUPILUMAB [Suspect]
     Active Substance: DUPILUMAB
     Indication: Asthma
     Route: 058
     Dates: start: 20250124, end: 20250124
  2. DUPILUMAB [Suspect]
     Active Substance: DUPILUMAB
     Dosage: 300 MG, QOW
     Route: 058
     Dates: start: 202502

REACTIONS (13)
  - Muscular weakness [Unknown]
  - Muscle twitching [Unknown]
  - Respiratory tract infection [Unknown]
  - Photophobia [Unknown]
  - Pain in extremity [Unknown]
  - Discomfort [Unknown]
  - Condition aggravated [Unknown]
  - Injection site pain [Unknown]
  - Eye inflammation [Unknown]
  - Dry eye [Recovered/Resolved]
  - Asthma [Recovering/Resolving]
  - Accidental exposure to product [Unknown]
  - Exposure via skin contact [Unknown]

NARRATIVE: CASE EVENT DATE: 20250101
